FAERS Safety Report 24397875 (Version 3)
Quarter: 2024Q4

REPORT INFORMATION
  Report Type: Spontaneous
  Country: JP (occurrence: JP)
  Receive Date: 20241004
  Receipt Date: 20241210
  Transmission Date: 20250115
  Serious: Yes (Hospitalization)
  Sender: DAIICHI
  Company Number: JP-DSJP-DS-2024-100855-JP

PATIENT
  Age: 84 Year
  Sex: Male
  Weight: 60.5 kg

DRUGS (19)
  1. EDOXABAN TOSYLATE [Suspect]
     Active Substance: EDOXABAN TOSYLATE
     Indication: Thrombosis prophylaxis
     Dosage: 30 MG, QD
     Route: 048
     Dates: start: 20231117, end: 20231124
  2. EDOXABAN TOSYLATE [Suspect]
     Active Substance: EDOXABAN TOSYLATE
     Indication: Cardiac failure acute
  3. HERBALS [Concomitant]
     Active Substance: HERBALS
     Indication: Product used for unknown indication
     Dosage: 2.5 G, TID, 30 MINITES AFTER BREAKFAST, LUNCH, AND DINNER
     Route: 048
     Dates: start: 20231114, end: 20231124
  4. URSODIOL [Concomitant]
     Active Substance: URSODIOL
     Indication: Product used for unknown indication
     Dosage: 100 MG, TID, 30 MINITES AFTER BREAKFAST, LUNCH, AND DINNER
     Route: 065
     Dates: start: 20231107, end: 20231123
  5. ASPIRIN [Concomitant]
     Active Substance: ASPIRIN
     Indication: Product used for unknown indication
     Dosage: 100 MG, QD
     Route: 048
  6. VONOPRAZAN FUMARATE [Concomitant]
     Active Substance: VONOPRAZAN FUMARATE
     Indication: Product used for unknown indication
     Dosage: 10 MG, QD
     Route: 048
  7. BISOPROLOL FUMARATE [Concomitant]
     Active Substance: BISOPROLOL FUMARATE
     Indication: Product used for unknown indication
     Dosage: 2.5 MG, QD
     Route: 048
  8. AZOSEMIDE DSEP [Concomitant]
     Indication: Product used for unknown indication
     Dosage: 60 MG, QD
     Route: 048
  9. ENTRESTO [Concomitant]
     Active Substance: SACUBITRIL\VALSARTAN
     Indication: Product used for unknown indication
     Dosage: 200 MG, QD
     Route: 048
  10. PITAVASTATIN CALCIUM [Concomitant]
     Active Substance: PITAVASTATIN CALCIUM
     Indication: Product used for unknown indication
     Dosage: 1 MG, QD
     Route: 048
  11. GLIMEPIRIDE [Concomitant]
     Active Substance: GLIMEPIRIDE
     Indication: Product used for unknown indication
     Dosage: 0.5 MG, QD
     Route: 048
  12. DOTINURAD [Concomitant]
     Active Substance: DOTINURAD
     Indication: Product used for unknown indication
     Dosage: 1 MG, QD, 30 MINITES AFTER BREAKFAST
     Route: 048
  13. MIYA-BM [Concomitant]
     Active Substance: CLOSTRIDIUM BUTYRICUM SPORES STRAIN M-55
     Indication: Product used for unknown indication
     Dosage: 1 G, TID, 30 MINITES AFTER BREAKFAST, LUNCH, AND DINNER
     Route: 048
     Dates: start: 20231108
  14. BELSOMRA [Concomitant]
     Active Substance: SUVOREXANT
     Indication: Product used for unknown indication
     Dosage: 15 MG
     Route: 065
  15. TRAZODONE HYDROCHLORIDE [Concomitant]
     Active Substance: TRAZODONE HYDROCHLORIDE
     Indication: Product used for unknown indication
     Dosage: 50 MG, QD, BEFORE SLEEP
     Route: 065
  16. DAYVIGO [Concomitant]
     Active Substance: LEMBOREXANT
     Indication: Insomnia
     Dosage: 5 MG, AT THE TIME OF INSOMNIA
     Route: 048
  17. RISPERIDONE TOWA [Concomitant]
     Indication: Restlessness
     Dosage: 0.5 MG, AT THE TIME OF UNREST
     Route: 048
  18. RISPERIDONE TOWA [Concomitant]
     Indication: Delirium
  19. HERBALS [Concomitant]
     Active Substance: HERBALS
     Indication: Product used for unknown indication
     Dosage: 2.5 G, TID, 30 MINITES AFTER BREAKFAST, LUNCH, AND DINNER
     Route: 065

REACTIONS (1)
  - Pneumonia [Recovering/Resolving]

NARRATIVE: CASE EVENT DATE: 20231123
